FAERS Safety Report 6119289-6 (Version None)
Quarter: 2009Q1

REPORT INFORMATION
  Report Type: 
  Country: None (occurrence: None)
  Receive Date: 20090316
  Receipt Date: 20090303
  Transmission Date: 20090719
  Serious: Yes (Other)
  Sender: FDA-Public Use
  Company Number: PHHY2009FR08243

PATIENT
  Age: 55 Year
  Sex: Female

DRUGS (1)
  1. VIVELLE-DOT [Suspect]
     Indication: HOT FLUSH
     Dosage: 75 UG, QD, FOR 1 MONTH
     Route: 062
     Dates: end: 20090226

REACTIONS (8)
  - ABDOMINAL PAIN [None]
  - CHEST DISCOMFORT [None]
  - FATIGUE [None]
  - HEADACHE [None]
  - HYPERTENSION [None]
  - INSOMNIA [None]
  - MUSCLE SPASMS [None]
  - PALPITATIONS [None]
